FAERS Safety Report 9752656 (Version 1)
Quarter: 2013Q4

REPORT INFORMATION
  Report Type: Spontaneous
  Country: US (occurrence: US)
  Receive Date: 20131213
  Receipt Date: 20131213
  Transmission Date: 20140711
  Serious: No
  Sender: FDA-Public Use
  Company Number: US-BAYER-2013-152575

PATIENT
  Age: 93 Year
  Sex: Male
  Weight: 73 kg

DRUGS (1)
  1. ALEVE CAPLET [Suspect]
     Indication: ANALGESIC THERAPY
     Dosage: 1 DF, PRN
     Route: 048
     Dates: end: 20131211

REACTIONS (2)
  - Eye pain [Recovered/Resolved]
  - Dry mouth [Recovered/Resolved]
